FAERS Safety Report 19002127 (Version 1)
Quarter: 2021Q1

REPORT INFORMATION
  Report Type: Report from Study
  Country: US (occurrence: US)
  Receive Date: 20210312
  Receipt Date: 20210312
  Transmission Date: 20210420
  Serious: Yes (Death, Life-Threatening, Other)
  Sender: FDA-Public Use
  Company Number: NVSC2021US056182

PATIENT
  Age: 20 Year
  Sex: Male

DRUGS (3)
  1. FLUDARABINE [Concomitant]
     Active Substance: FLUDARABINE PHOSPHATE
     Indication: CHEMOTHERAPY
     Dosage: UNK
     Route: 065
  2. CYCLOPHOSPHAMIDE. [Concomitant]
     Active Substance: CYCLOPHOSPHAMIDE
     Indication: CHEMOTHERAPY
     Dosage: UNK
     Route: 065
  3. KYMRIAH [Suspect]
     Active Substance: TISAGENLECLEUCEL
     Indication: B-CELL TYPE ACUTE LEUKAEMIA
     Dosage: UNK
     Route: 065
     Dates: start: 20200706

REACTIONS (18)
  - Bone marrow failure [Unknown]
  - Thrombocytopenia [Unknown]
  - Cytopenia [Unknown]
  - Aspergillus infection [Unknown]
  - Cytokine release syndrome [Recovered/Resolved]
  - Transplant rejection [Fatal]
  - Nephropathy toxic [Unknown]
  - Klebsiella infection [Unknown]
  - White blood cell count decreased [Unknown]
  - Pyrexia [Recovered/Resolved]
  - Hypogammaglobulinaemia [Unknown]
  - Haemoglobin decreased [Unknown]
  - Lymphocyte count decreased [Unknown]
  - Transplant failure [Fatal]
  - Cytomegalovirus infection [Unknown]
  - Platelet count decreased [Unknown]
  - Organ failure [Unknown]
  - Neutrophil count decreased [Unknown]
